FAERS Safety Report 5680497-X (Version None)
Quarter: 2008Q1

REPORT INFORMATION
  Report Type: 
  Country: None (occurrence: None)
  Receive Date: 20080326
  Receipt Date: 20080314
  Transmission Date: 20080703
  Serious: Yes (Hospitalization)
  Sender: FDA-Public Use
  Company Number: CA-ELI_LILLY_AND_COMPANY-CA200803004185

PATIENT
  Sex: Female

DRUGS (2)
  1. ZYPREXA [Suspect]
     Route: 048
     Dates: start: 20030101
  2. ZYPREXA [Suspect]
     Dosage: 7.5 MG, UNK
     Route: 048
     Dates: start: 20060101

REACTIONS (4)
  - ADVERSE EVENT [None]
  - HOSPITALISATION [None]
  - MALAISE [None]
  - NAUSEA [None]
